FAERS Safety Report 5012977-4 (Version None)
Quarter: 2006Q2

REPORT INFORMATION
  Report Type: 
  Country: None (occurrence: None)
  Receive Date: 20060524
  Receipt Date: 20060314
  Transmission Date: 20061013
  Serious: Yes (Death)
  Sender: FDA-Public Use
  Company Number: T200600267

PATIENT
  Age: 77 Year
  Sex: Male

DRUGS (1)
  1. LIQUID BAROSPERSE(BARIUM SULFATE) SOLUTION [Suspect]
     Dosage: ORAL
     Route: 048

REACTIONS (6)
  - ASPIRATION [None]
  - HYPOTENSION [None]
  - HYPOVENTILATION [None]
  - LUNG INFILTRATION [None]
  - METABOLIC ACIDOSIS [None]
  - RESPIRATORY ACIDOSIS [None]
